FAERS Safety Report 5798489-9 (Version None)
Quarter: 2008Q3

REPORT INFORMATION
  Report Type: 
  Country: None (occurrence: None)
  Receive Date: 20080702
  Receipt Date: 20080630
  Transmission Date: 20090109
  Serious: Yes (Death, Life-Threatening)
  Sender: FDA-Public Use
  Company Number: PHBS2008IT04938

PATIENT
  Age: 67 Year
  Sex: Male

DRUGS (6)
  1. ZOLEDRONIC ACID [Suspect]
     Indication: METASTASIS
     Dosage: UNK
     Dates: start: 20041201
  2. CHEMOTHERAPEUTICS NOS [Concomitant]
     Dosage: UNK
     Dates: start: 20041201
  3. CISPLATIN [Concomitant]
     Dosage: UNK
     Dates: start: 20041201
  4. GEMCITABINE [Concomitant]
     Dosage: UNK
     Dates: start: 20041201
  5. CORTISONACETAT [Concomitant]
     Dosage: UNK
     Dates: start: 20050201
  6. DEXAMETHASONE [Concomitant]
     Dosage: UNK
     Dates: start: 20050201

REACTIONS (11)
  - ADRENAL DISORDER [None]
  - BRONCHOALVEOLAR LAVAGE [None]
  - COUGH [None]
  - DYSPNOEA [None]
  - HAEMOPTYSIS [None]
  - IMMUNOSUPPRESSION [None]
  - MALAISE [None]
  - NAUSEA [None]
  - NEOPLASM PROGRESSION [None]
  - STRONGYLOIDIASIS [None]
  - VOMITING [None]
